FAERS Safety Report 10287270 (Version 1)
Quarter: 2014Q3

REPORT INFORMATION
  Report Type: Spontaneous
  Country: US (occurrence: US)
  Receive Date: 20140709
  Receipt Date: 20140709
  Transmission Date: 20150326
  Serious: Yes (Other)
  Sender: FDA-Public Use
  Company Number: US-MALLINCKRODT-T201402642

PATIENT
  Sex: Male

DRUGS (1)
  1. MORPHINE SULFATE. [Suspect]
     Active Substance: MORPHINE SULFATE
     Indication: DYSPNOEA
     Dosage: 0.25 ML, Q 4 HRS PRN
     Route: 048

REACTIONS (6)
  - Hallucination [Recovered/Resolved]
  - Fall [Recovered/Resolved]
  - Off label use [Unknown]
  - Amnesia [Recovered/Resolved]
  - Abnormal dreams [Recovered/Resolved]
  - Periorbital contusion [Recovered/Resolved]
